FAERS Safety Report 19132053 (Version 1)
Quarter: 2021Q2

REPORT INFORMATION
  Report Type: Spontaneous
  Country: FR (occurrence: FR)
  Receive Date: 20210413
  Receipt Date: 20210413
  Transmission Date: 20210717
  Serious: Yes (Hospitalization)
  Sender: FDA-Public Use
  Company Number: FR-TEVA-2021-FR-1899900

PATIENT
  Age: 62 Year
  Sex: Male
  Weight: 84 kg

DRUGS (7)
  1. ALFUZOSINE (CHLORHYDRATE D) [Concomitant]
     Active Substance: ALFUZOSIN HYDROCHLORIDE
     Route: 048
  2. LANSOPRAZOLE. [Suspect]
     Active Substance: LANSOPRAZOLE
     Indication: GASTROOESOPHAGEAL REFLUX DISEASE
     Dosage: NOT KNOWN
     Route: 048
     Dates: start: 20210216, end: 20210310
  3. LYSANXIA 10 MG, COMPRIME [Concomitant]
     Active Substance: PRAZEPAM
     Dosage: 10 MG
     Route: 048
  4. EDUCTYL [Concomitant]
     Active Substance: POTASSIUM BITARTRATE\SODIUM BICARBONATE
  5. PIFELTRO [Suspect]
     Active Substance: DORAVIRINE
     Indication: HIV TEST POSITIVE
     Dosage: 100 MG
     Route: 048
     Dates: start: 20210111
  6. ISENTRESS [Suspect]
     Active Substance: RALTEGRAVIR POTASSIUM
     Indication: HIV TEST POSITIVE
     Dosage: 1200 MG
     Route: 048
     Dates: start: 20210111
  7. COVERSYL 5 MG, COMPRIME PELLICULE SECABLE [Concomitant]
     Active Substance: PERINDOPRIL ARGININE
     Dosage: 5 MG
     Route: 048

REACTIONS (1)
  - Drug reaction with eosinophilia and systemic symptoms [Recovering/Resolving]

NARRATIVE: CASE EVENT DATE: 20210302
